FAERS Safety Report 7625917-6 (Version None)
Quarter: 2011Q3

REPORT INFORMATION
  Report Type: 
  Country: None (occurrence: None)
  Receive Date: 20110721
  Receipt Date: 20110721
  Transmission Date: 20111222
  Serious: Yes (Life-Threatening, Hospitalization)
  Sender: FDA-Public Use
  Company Number: None

PATIENT
  Sex: Male
  Weight: 76.203 kg

DRUGS (1)
  1. EFFIENT [Suspect]
     Indication: MEDICAL DEVICE IMPLANTATION
     Dosage: 1 TABLET
     Route: 048
     Dates: start: 20110501, end: 20110528

REACTIONS (5)
  - THORACIC HAEMORRHAGE [None]
  - ARTERIAL OCCLUSIVE DISEASE [None]
  - DYSPNOEA [None]
  - DEVICE OCCLUSION [None]
  - PLATELET COUNT ABNORMAL [None]
